FAERS Safety Report 5397176-9 (Version None)
Quarter: 2007Q3

REPORT INFORMATION
  Report Type: 
  Country: None (occurrence: None)
  Receive Date: 20070725
  Receipt Date: 20070713
  Transmission Date: 20080115
  Serious: Yes (Life-Threatening)
  Sender: FDA-Public Use
  Company Number: FR-PFIZER INC-2007051988

PATIENT
  Age: 76 Year
  Sex: Male

DRUGS (4)
  1. ATORVASTATIN CALCIUM [Suspect]
     Route: 048
  2. CELIPROLOL HYDROCHLORIDE [Suspect]
     Route: 048
  3. LASIX [Interacting]
     Dosage: DAILY DOSE:80MG
     Route: 048
  4. IRBESARTAN [Interacting]
     Route: 048

REACTIONS (3)
  - ANURIA [None]
  - DRUG INTERACTION [None]
  - RENAL FAILURE ACUTE [None]
